FAERS Safety Report 16397828 (Version 5)
Quarter: 2020Q1

REPORT INFORMATION
  Report Type: Spontaneous
  Country: AU (occurrence: AU)
  Receive Date: 20190606
  Receipt Date: 20200109
  Transmission Date: 20200409
  Serious: Yes (Other)
  Sender: FDA-Public Use
  Company Number: PHHY2019AU125058

PATIENT
  Sex: Female

DRUGS (3)
  1. GILENYA [Suspect]
     Active Substance: FINGOLIMOD HYDROCHLORIDE
     Indication: RELAPSING-REMITTING MULTIPLE SCLEROSIS
     Dosage: UNK
     Route: 048
     Dates: start: 201208, end: 20190603
  2. DITROPAN [Concomitant]
     Active Substance: OXYBUTYNIN CHLORIDE
     Indication: PRODUCT USED FOR UNKNOWN INDICATION
     Route: 065
  3. GILENYA [Suspect]
     Active Substance: FINGOLIMOD HYDROCHLORIDE
     Dosage: 1 DF, QOD
     Route: 048
     Dates: start: 20190604, end: 20190618

REACTIONS (11)
  - Urinary tract infection [Unknown]
  - Prescribed underdose [Unknown]
  - JC virus infection [Unknown]
  - Gait disturbance [Recovering/Resolving]
  - Immune reconstitution inflammatory syndrome [Unknown]
  - Progressive multifocal leukoencephalopathy [Unknown]
  - Muscular weakness [Unknown]
  - Feeling abnormal [Unknown]
  - Coordination abnormal [Unknown]
  - Respiratory tract infection [Unknown]
  - JC virus CSF test positive [Unknown]

NARRATIVE: CASE EVENT DATE: 201811
